FAERS Safety Report 18072332 (Version 1)
Quarter: 2020Q3

REPORT INFORMATION
  Report Type: Report from Study
  Country: US (occurrence: US)
  Receive Date: 20200727
  Receipt Date: 20200727
  Transmission Date: 20201103
  Serious: Yes (Hospitalization)
  Sender: FDA-Public Use
  Company Number: US-PFIZER INC-2020283851

PATIENT

DRUGS (3)
  1. 5?FLUOROURACIL [FLUOROURACIL] [Suspect]
     Active Substance: FLUOROURACIL
     Indication: OROPHARYNGEAL SQUAMOUS CELL CARCINOMA
     Dosage: 750 MG/M2, EVERY 3 WEEKS (4 DAYS BY CONTINUOUS INFUSION DURING CYCLE 2)
     Route: 041
  2. DOCETAXEL. [Suspect]
     Active Substance: DOCETAXEL
     Indication: OROPHARYNGEAL SQUAMOUS CELL CARCINOMA
     Dosage: 75 MG/M2, EVERY 3 WEEKS (ON DAY 1, EVERY 21 DAYS, ON CYCLE 2)
  3. CISPLATIN. [Suspect]
     Active Substance: CISPLATIN
     Indication: OROPHARYNGEAL SQUAMOUS CELL CARCINOMA
     Dosage: 100 MG/M2, EVERY 3 WEEKS EVERY 3 WEEKS  (ON DAY 1, EVERY 21 DAYS, ON CYCLE 2)

REACTIONS (2)
  - Neutropenia [Unknown]
  - Cholangitis [Unknown]
